FAERS Safety Report 7352147-8 (Version None)
Quarter: 2011Q1

REPORT INFORMATION
  Report Type: 
  Country: None (occurrence: None)
  Receive Date: 20110315
  Receipt Date: 20110302
  Transmission Date: 20110831
  Serious: Yes (Hospitalization)
  Sender: FDA-Public Use
  Company Number: JP-BAYER-200910565BYL

PATIENT
  Age: 67 Year
  Sex: Female
  Weight: 43.6 kg

DRUGS (9)
  1. NEXAVAR [Suspect]
     Dosage: 400 MG (DAILY DOSE), , ORAL
     Route: 048
     Dates: start: 20090317, end: 20090430
  2. NEXAVAR [Suspect]
     Indication: RENAL CELL CARCINOMA STAGE IV
     Route: 048
     Dates: start: 20090211, end: 20090219
  3. UREPEARL [Concomitant]
     Indication: PROPHYLAXIS
     Dosage: UNK
     Route: 061
     Dates: start: 20090211, end: 20090225
  4. THYRADIN S [Concomitant]
     Dosage: 50 ?G (DAILY DOSE), , ORAL
     Route: 048
     Dates: start: 20080402
  5. UREPEARL [Concomitant]
     Indication: PALMAR-PLANTAR ERYTHRODYSAESTHESIA SYNDROME
     Dosage: UNK
     Route: 061
     Dates: start: 20090402
  6. LOXONIN [Concomitant]
     Indication: HEADACHE
     Dosage: DAILY DOSE 120 MG
     Dates: start: 20090514
  7. PARIET [Concomitant]
     Dosage: 20 MG (DAILY DOSE), , ORAL
     Route: 048
     Dates: start: 20090219, end: 20090223
  8. LOXONIN [Concomitant]
     Indication: PYREXIA
     Dosage: 60 MG (DAILY DOSE), , ORAL
     Route: 048
     Dates: start: 20090219, end: 20090513
  9. SELBEX [Concomitant]
     Indication: PROPHYLAXIS AGAINST GASTROINTESTINAL ULCER
     Dosage: 100 MG (DAILY DOSE), , ORAL
     Route: 048
     Dates: start: 20090514

REACTIONS (5)
  - COLITIS ISCHAEMIC [None]
  - PALMAR-PLANTAR ERYTHRODYSAESTHESIA SYNDROME [None]
  - ARTHRALGIA [None]
  - HEADACHE [None]
  - PYREXIA [None]
